FAERS Safety Report 6409561-4 (Version None)
Quarter: 2009Q4

REPORT INFORMATION
  Report Type: 
  Country: None (occurrence: None)
  Receive Date: 20091022
  Receipt Date: 20091013
  Transmission Date: 20100525
  Serious: Yes (Hospitalization)
  Sender: FDA-Public Use
  Company Number: GB-RANBAXY-2009RR-28638

PATIENT
  Age: 61 Year
  Sex: Male

DRUGS (10)
  1. CITALOPRAM HYDROBROMIDE [Suspect]
     Indication: SCHIZOPHRENIA
     Dosage: UNK
     Route: 048
     Dates: end: 20090129
  2. CLOZARIL [Suspect]
     Indication: SCHIZOPHRENIA
     Dosage: UNK
     Route: 048
     Dates: start: 20090115, end: 20090129
  3. CLOZARIL [Suspect]
     Dosage: UNK
     Route: 048
     Dates: start: 20090113
  4. CLOZARIL [Suspect]
     Dosage: UNK
     Route: 048
     Dates: start: 20090114
  5. CLOZARIL [Suspect]
     Dosage: 8.4 G, UNK
     Route: 048
  6. DIAZEPAM [Suspect]
     Dosage: UNK
     Dates: end: 20090129
  7. VALPROIC ACID [Suspect]
     Indication: SCHIZOPHRENIA
     Dosage: UNK
     Route: 048
     Dates: start: 20090115, end: 20090129
  8. METFORMIN HCL [Suspect]
     Dosage: UNK
     Route: 048
     Dates: start: 20090115, end: 20090129
  9. SIMVASTATIN [Suspect]
     Dosage: UNK
     Route: 048
     Dates: start: 20090115, end: 20090129
  10. ASPIRIN [Concomitant]
     Indication: HYPERCHOLESTEROLAEMIA
     Dosage: UNK
     Route: 048

REACTIONS (4)
  - CONFUSIONAL STATE [None]
  - CSF TEST ABNORMAL [None]
  - CSF WHITE BLOOD CELL COUNT POSITIVE [None]
  - OVERDOSE [None]
